FAERS Safety Report 25920808 (Version 2)
Quarter: 2025Q4

REPORT INFORMATION
  Report Type: Spontaneous
  Country: GB (occurrence: GB)
  Receive Date: 20251014
  Receipt Date: 20251106
  Transmission Date: 20260117
  Serious: Yes (Hospitalization, Other)
  Sender: ABBVIE
  Company Number: GB-ABBVIE-6501365

PATIENT
  Age: 52 Year
  Sex: Male
  Weight: 122.5 kg

DRUGS (19)
  1. FOSCARBIDOPA\FOSLEVODOPA [Suspect]
     Active Substance: FOSCARBIDOPA\FOSLEVODOPA
     Indication: Parkinson^s disease
     Dosage: NIGHT DOSE 0.64, BASE 0.66, HIGH 0.67
     Route: 058
  2. Aproderm [Concomitant]
     Indication: Product used for unknown indication
     Dosage: CUTANEOUS,?08:00 AND 18:00,?COLLOIDAL OAT CREAM - -?CUTANEOUS - AFFECTED AREAS, 1 APPLICATION
  3. ATORVASTATIN [Concomitant]
     Active Substance: ATORVASTATIN
     Indication: Product used for unknown indication
     Dosage: ONCE A DAY AT22:00
     Route: 048
  4. AMOXICILLIN\CLAVULANIC ACID [Concomitant]
     Active Substance: AMOXICILLIN\CLAVULANIC ACID
     Indication: Product used for unknown indication
     Dosage: 500MG/125MG TABLETS -?ORAL,?625 MG THREE TIMES A DAY AT 08:00,?14:00 AND 22:00 FOR 3 DAYS,?8 DOSES
     Route: 048
     Dates: start: 20251022
  5. DOCUSATE SODIUM [Concomitant]
     Active Substance: DOCUSATE SODIUM
     Indication: Product used for unknown indication
     Dosage: AT 08:00 AND 18:00,?QUANTITY: X 30
     Route: 048
  6. ENOXAPARIN [Concomitant]
     Active Substance: ENOXAPARIN
     Indication: Product used for unknown indication
     Dosage: AROVI) - AT 08:00 AND 18:00
     Route: 058
  7. HYDROXOCOBALAMIN [Concomitant]
     Active Substance: HYDROXOCOBALAMIN
     Indication: Product used for unknown indication
     Dosage: INTRAMUSCULAR, 1 MG?ONCE A DAY ON MONDAY, WEDNESDAY AND?FRIDAY AT 08:00 FOR 6 DOSES?4 DOSES?REQUIRED
     Dates: start: 20251029
  8. HYDROXOCOBALAMIN [Concomitant]
     Active Substance: HYDROXOCOBALAMIN
     Indication: Product used for unknown indication
     Dosage: LAST ADMIN DATE: 2025
     Dates: start: 20251017
  9. HYDROXOCOBALAMIN [Concomitant]
     Active Substance: HYDROXOCOBALAMIN
     Indication: Product used for unknown indication
     Dosage: LAST ADMIN DATE: OCT 2025
     Dates: start: 20251020
  10. METFORMIN [Concomitant]
     Active Substance: METFORMIN HYDROCHLORIDE
     Indication: Product used for unknown indication
     Dosage: AT?08:00 AND 500 MG ONCE A DAY AT 18:00
     Route: 048
  11. OXYCODONE HYDROCHLORIDE [Concomitant]
     Active Substance: OXYCODONE HYDROCHLORIDE
     Indication: Product used for unknown indication
     Dosage: (SHORTEC) -, 5 MG - 10 MG AS REQUIRED?UP TO A MAXIMUM OF 60 MG IN 24 HOURS.?MINIMUM INTERVAL 4 HOUR
     Route: 048
  12. ACETAMINOPHEN [Concomitant]
     Active Substance: ACETAMINOPHEN
     Indication: Product used for unknown indication
     Dosage: ORAL, LG FOUR TIMES A DAY?AT 08:00, 13:00, 18:00 AND 22:00 UP TO A?MAXIMUM OF 4G IN 24 HOURS. MIN...
     Route: 048
  13. PREGABALIN [Concomitant]
     Active Substance: PREGABALIN
     Indication: Product used for unknown indication
     Dosage: 200 MG TWICE A DAY AT 08:00 AND 22:00
  14. RAMIPRIL [Concomitant]
     Active Substance: RAMIPRIL
     Indication: Product used for unknown indication
     Dosage: AT?08:00
     Route: 048
  15. ROPINIROLE [Concomitant]
     Active Substance: ROPINIROLE
     Indication: Product used for unknown indication
     Dosage: AT?08:00
     Route: 048
  16. SENNA [Concomitant]
     Active Substance: SENNOSIDES
     Indication: Product used for unknown indication
     Dosage: AT 22:00
     Route: 048
  17. SYSTANE BALANCE [Concomitant]
     Active Substance: PROPYLENE GLYCOL
     Indication: Product used for unknown indication
     Dosage: EYE DROPS - BOTH EYES, DROP AS REQUIRED. MINIMUM-INTERVAL 6 HOURS
  18. AMITRIPTYLINE [Concomitant]
     Active Substance: AMITRIPTYLINE
     Indication: Product used for unknown indication
     Dosage: AT 22:00
     Route: 048
  19. BENSERAZIDE HYDROCHLORIDE\LEVODOPA [Concomitant]
     Active Substance: BENSERAZIDE HYDROCHLORIDE\LEVODOPA
     Indication: Product used for unknown indication
     Dosage: 25MG ^?+ 100MG CAPSULES?(MADOPAR CR) MR

REACTIONS (2)
  - Renal mass [Recovering/Resolving]
  - Post procedural sepsis [Unknown]

NARRATIVE: CASE EVENT DATE: 20240101
